FAERS Safety Report 25659812 (Version 1)
Quarter: 2025Q3

REPORT INFORMATION
  Report Type: Spontaneous
  Country: CN (occurrence: CN)
  Receive Date: 20250808
  Receipt Date: 20250808
  Transmission Date: 20251020
  Serious: Yes (Other)
  Sender: MERCK SHARP & DOHME LLC
  Company Number: CN-009507513-2316564

PATIENT
  Age: 58 Year
  Sex: Male
  Weight: 54 kg

DRUGS (2)
  1. CILASTATIN SODIUM\IMIPENEM [Suspect]
     Active Substance: CILASTATIN SODIUM\IMIPENEM
     Indication: Cholecystitis
     Dosage: 0.5G Q8H
     Route: 041
     Dates: start: 20250711, end: 20250719
  2. SODIUM CHLORIDE [Concomitant]
     Active Substance: SODIUM CHLORIDE
     Indication: Medication dilution
     Dosage: 100ML Q8H
     Route: 041
     Dates: start: 20250711, end: 20250719

REACTIONS (3)
  - Macule [Recovering/Resolving]
  - Product use in unapproved indication [Unknown]
  - Pruritus [Recovering/Resolving]

NARRATIVE: CASE EVENT DATE: 20250711
